FAERS Safety Report 7027673-1 (Version None)
Quarter: 2010Q4

REPORT INFORMATION
  Report Type: 
  Country: None (occurrence: None)
  Receive Date: 20101004
  Receipt Date: 20100921
  Transmission Date: 20110411
  Serious: Yes (Hospitalization)
  Sender: FDA-Public Use
  Company Number: IR-WATSON-2010-13023

PATIENT
  Age: 32 Year
  Sex: Male

DRUGS (1)
  1. PROPRANOLOL [Suspect]
     Indication: POISONING
     Dosage: 3600 MG SINGLE, (60-40MG TABS)
     Route: 048

REACTIONS (5)
  - DRUG TOXICITY [None]
  - HYPOTENSION [None]
  - JOINT DISLOCATION [None]
  - OVERDOSE [None]
  - SHOCK [None]
